FAERS Safety Report 4510840-6 (Version None)
Quarter: 2004Q4

REPORT INFORMATION
  Report Type: 
  Country: None (occurrence: None)
  Receive Date: 20041122
  Receipt Date: 20041105
  Transmission Date: 20050328
  Serious: Yes (Hospitalization)
  Sender: FDA-Public Use
  Company Number: DSA_25346_2004

PATIENT
  Age: 49 Year
  Sex: Female

DRUGS (3)
  1. DILTIAZEM HYDROCHLORIDE [Suspect]
     Indication: SECONDARY HYPERTENSION
     Dosage: 1 DF Q DAY PO
     Route: 048
     Dates: start: 20040128, end: 20040204
  2. ADVIL [Suspect]
     Indication: PYREXIA
     Dosage: 1 DF TID PO
     Route: 048
     Dates: start: 20040203, end: 20040204
  3. APROVEL [Concomitant]

REACTIONS (11)
  - ACUTE GENERALISED EXANTHEMATOUS PUSTULOSIS [None]
  - ALANINE AMINOTRANSFERASE INCREASED [None]
  - ALPHA 1 GLOBULIN INCREASED [None]
  - ALPHA 2 GLOBULIN INCREASED [None]
  - ASTHENIA [None]
  - BLOOD GLUCOSE INCREASED [None]
  - C-REACTIVE PROTEIN INCREASED [None]
  - HEADACHE [None]
  - HYPOALBUMINAEMIA [None]
  - PYREXIA [None]
  - WHITE BLOOD CELL COUNT INCREASED [None]
